FAERS Safety Report 23833288 (Version 2)
Quarter: 2024Q2

REPORT INFORMATION
  Report Type: Spontaneous
  Country: US (occurrence: None)
  Receive Date: 20240508
  Receipt Date: 20240619
  Transmission Date: 20240715
  Serious: No
  Sender: FDA-Public Use
  Company Number: 2024A104558

PATIENT
  Sex: Female

DRUGS (2)
  1. TEZEPELUMAB-EKKO [Suspect]
     Active Substance: TEZEPELUMAB-EKKO
     Indication: Asthma
     Route: 058
     Dates: start: 2022, end: 202404
  2. TEZEPELUMAB-EKKO [Concomitant]
     Active Substance: TEZEPELUMAB-EKKO

REACTIONS (1)
  - Periarthritis [Unknown]
